FAERS Safety Report 18412679 (Version 2)
Quarter: 2020Q4

REPORT INFORMATION
  Report Type: Report from Study
  Country: CN (occurrence: CN)
  Receive Date: 20201022
  Receipt Date: 20201029
  Transmission Date: 20210114
  Serious: Yes (Hospitalization)
  Sender: FDA-Public Use
  Company Number: CN-ASTRAZENECA-2020SF35406

PATIENT
  Age: 17591 Day
  Sex: Male
  Weight: 75 kg

DRUGS (4)
  1. INSULIN GLARGINE [Concomitant]
     Active Substance: INSULIN GLARGINE
     Indication: DIABETES MELLITUS
     Dosage: 13 UNITS PER TIME
     Route: 058
  2. BYETTA [Suspect]
     Active Substance: EXENATIDE
     Indication: DIABETES MELLITUS
     Dosage: 10 UG, TWO TIMES A DAY, ONCE IN THE MORNING AND ONCE IN THE EVENING (1 HOUR BEFORE MEAL)
     Route: 065
     Dates: start: 20200930
  3. INSULIN [Concomitant]
     Active Substance: INSULIN NOS
  4. INSULIN ASPART [Concomitant]
     Active Substance: INSULIN ASPART

REACTIONS (8)
  - Hypovolaemic shock [Unknown]
  - Dehydration [Unknown]
  - Dyspepsia [Unknown]
  - Diarrhoea [Recovered/Resolved]
  - Vomiting [Recovering/Resolving]
  - Eructation [Unknown]
  - Muscular weakness [Not Recovered/Not Resolved]
  - Gait disturbance [Unknown]

NARRATIVE: CASE EVENT DATE: 20201002
